FAERS Safety Report 5087975-5 (Version None)
Quarter: 2006Q3

REPORT INFORMATION
  Report Type: 
  Country: None (occurrence: None)
  Receive Date: 20060727
  Receipt Date: 20060602
  Transmission Date: 20061208
  Serious: Yes (Other)
  Sender: FDA-Public Use
  Company Number: 2006058205

PATIENT
  Age: 82 Year
  Sex: Female
  Weight: 49.8957 kg

DRUGS (8)
  1. LYRICA [Suspect]
     Indication: SCIATICA
     Dosage: 300 MG (150 MG,2 IN 1 D),ORAL
     Route: 048
     Dates: start: 20060427
  2. AZITHROMYCIN [Suspect]
     Indication: PNEUMONIA
     Dates: start: 20060101
  3. LANOXIN [Concomitant]
  4. FOSAMAX [Concomitant]
  5. DUONEB [Concomitant]
  6. ADVAIR DISKUS 100/50 [Concomitant]
  7. ASPIRIN [Concomitant]
  8. CENTRUM SILVER (ASCORBIC ACID, CALCIUM, MINERALS NOS, RETINOL, TOCOPHE [Concomitant]

REACTIONS (3)
  - GAIT DISTURBANCE [None]
  - PYREXIA [None]
  - SOMNOLENCE [None]
